FAERS Safety Report 7923912-0 (Version None)
Quarter: 2011Q4

REPORT INFORMATION
  Report Type: 
  Country: None (occurrence: None)
  Receive Date: 20111117
  Receipt Date: 20110210
  Transmission Date: 20120403
  Serious: No
  Sender: FDA-Public Use
  Company Number: US-AMGEN-USASP2011007966

PATIENT
  Age: 52 Year
  Sex: Female
  Weight: 45.351 kg

DRUGS (5)
  1. RECLAST [Concomitant]
  2. ENBREL [Suspect]
     Indication: PRODUCT USED FOR UNKNOWN INDICATION
     Dosage: 50 MG, QWK
     Route: 058
  3. CALCIUM                            /00009901/ [Concomitant]
  4. FOLIC ACID [Concomitant]
     Dosage: 1 MG, UNK
  5. ESTRADERM [Concomitant]
     Dosage: 0.05 MG, UNK

REACTIONS (4)
  - FATIGUE [None]
  - INJECTION SITE SWELLING [None]
  - INJECTION SITE RASH [None]
  - INJECTION SITE PAIN [None]
